FAERS Safety Report 7483427-3 (Version None)
Quarter: 2011Q2

REPORT INFORMATION
  Report Type: 
  Country: None (occurrence: None)
  Receive Date: 20110517
  Receipt Date: 20110414
  Transmission Date: 20111010
  Serious: Yes (Other)
  Sender: FDA-Public Use
  Company Number: US-BAYER-201036642NA

PATIENT
  Age: 43 Year
  Sex: Female

DRUGS (14)
  1. CIMETIDINE [Concomitant]
  2. ASPIRIN [Concomitant]
  3. PRILOSEC [Concomitant]
  4. OXYBUTYNIN [Concomitant]
  5. XENICAL [Concomitant]
  6. NAPROXEN [Concomitant]
  7. YASMIN [Suspect]
     Indication: MENSTRUATION IRREGULAR
     Dosage: UNK
     Route: 048
     Dates: start: 20030101, end: 20080101
  8. ALBUTEROL INHALER [Concomitant]
  9. METOCLOPRAMIDE [Concomitant]
  10. LISINOPRIL [Concomitant]
  11. METFORMIN HCL [Concomitant]
  12. SYNTHROID [Concomitant]
  13. VYTORIN [Concomitant]
  14. XENICAL [Concomitant]

REACTIONS (3)
  - DEPRESSION [None]
  - ANXIETY [None]
  - CHOLECYSTECTOMY [None]
